FAERS Safety Report 4873106-0 (Version None)
Quarter: 2005Q4

REPORT INFORMATION
  Report Type: 
  Country: None (occurrence: None)
  Receive Date: 20051201
  Receipt Date: 20050715
  Transmission Date: 20060501
  Serious: No
  Sender: FDA-Public Use
  Company Number: 2005PV000405

PATIENT
  Age: 69 Year
  Sex: Female
  Weight: 117.9352 kg

DRUGS (10)
  1. BYETTA [Suspect]
     Indication: DIABETES MELLITUS NON-INSULIN-DEPENDENT
     Dosage: 5 CG; BID; SC
     Route: 058
     Dates: start: 20050714
  2. METFORMIN [Concomitant]
  3. CATAPRES [Concomitant]
  4. PROTONIX [Concomitant]
  5. FUROSEMIDE [Concomitant]
  6. LEVOXYL [Concomitant]
  7. SINGULAIR [Concomitant]
  8. ALLEGRA [Concomitant]
  9. LIPITOR [Concomitant]
  10. PEPCID [Concomitant]

REACTIONS (10)
  - BLOOD GLUCOSE DECREASED [None]
  - CONSTIPATION [None]
  - DECREASED APPETITE [None]
  - FATIGUE [None]
  - LACRIMATION INCREASED [None]
  - NAUSEA [None]
  - RHINORRHOEA [None]
  - SNEEZING [None]
  - SOMNOLENCE [None]
  - VOMITING [None]
